FAERS Safety Report 11849576 (Version 1)
Quarter: 2015Q4

REPORT INFORMATION
  Report Type: Spontaneous
  Country: US (occurrence: None)
  Receive Date: 20151217
  Receipt Date: 20151217
  Transmission Date: 20160305
  Serious: Yes (Hospitalization, Disabling, Other)
  Sender: FDA-Public Use
  Company Number: None

PATIENT
  Age: 60 Year
  Sex: Female
  Weight: 79.38 kg

DRUGS (19)
  1. FOSAMAX [Suspect]
     Active Substance: ALENDRONATE SODIUM
     Indication: DRUG THERAPY
     Route: 048
     Dates: start: 19990915, end: 20090331
  2. GABAPENTIN. [Concomitant]
     Active Substance: GABAPENTIN
  3. VITAMIN D [Concomitant]
     Active Substance: CHOLECALCIFEROL
  4. VITAMIN C [Concomitant]
     Active Substance: ASCORBIC ACID
  5. DUCOLACE/SODIUM [Concomitant]
  6. 3D BOOT [Concomitant]
  7. ASPIRIN. [Concomitant]
     Active Substance: ASPIRIN
  8. LISINOPRIL AND HYDROCHLOROTHIAZIDE [Concomitant]
     Active Substance: HYDROCHLOROTHIAZIDE\LISINOPRIL
  9. ESTRADIOL. [Concomitant]
     Active Substance: ESTRADIOL
  10. PERCOCET [Concomitant]
     Active Substance: ACETAMINOPHEN\OXYCODONE HYDROCHLORIDE
  11. MAGNESIUM [Concomitant]
     Active Substance: MAGNESIUM
  12. KRILL OIL [Concomitant]
     Active Substance: DIETARY SUPPLEMENT
  13. SYNTHROID [Concomitant]
     Active Substance: LEVOTHYROXINE SODIUM
  14. MOBIC [Concomitant]
     Active Substance: MELOXICAM
  15. FORTEO [Concomitant]
     Active Substance: TERIPARATIDE
  16. 24-HOUR ALLERGY DRUG [Concomitant]
  17. ZANAFLEX [Concomitant]
     Active Substance: TIZANIDINE HYDROCHLORIDE
  18. CALCIUM [Concomitant]
     Active Substance: CALCIUM
  19. 12-HOUR SUDAFED [Concomitant]

REACTIONS (3)
  - Spinal fracture [None]
  - Femur fracture [None]
  - Foot fracture [None]

NARRATIVE: CASE EVENT DATE: 20140820
